FAERS Safety Report 6885639-6 (Version None)
Quarter: 2010Q3

REPORT INFORMATION
  Report Type: 
  Country: None (occurrence: None)
  Receive Date: 20100729
  Receipt Date: 20080128
  Transmission Date: 20110219
  Serious: No
  Sender: FDA-Public Use
  Company Number: US-PFIZER INC-2008000020

PATIENT
  Sex: Female
  Weight: 122.47 kg

DRUGS (5)
  1. QUINAPRIL HCL [Suspect]
     Indication: HYPERTENSION
     Route: 048
     Dates: start: 20070101
  2. WARFARIN [Concomitant]
  3. FUROSEMIDE [Concomitant]
  4. DIGOXIN [Concomitant]
  5. METOPROLOL TARTRATE [Concomitant]

REACTIONS (3)
  - ACNE [None]
  - HAIR COLOUR CHANGES [None]
  - RASH [None]
